FAERS Safety Report 9583608 (Version 1)
Quarter: 2013Q4

REPORT INFORMATION
  Report Type: Spontaneous
  Country: US (occurrence: US)
  Receive Date: 20131002
  Receipt Date: 20131002
  Transmission Date: 20140711
  Serious: No
  Sender: FDA-Public Use
  Company Number: US-AMGEN-USASP2013048383

PATIENT
  Age: 63 Year
  Sex: Male
  Weight: 106.58 kg

DRUGS (7)
  1. ENBREL [Suspect]
     Indication: PRODUCT USED FOR UNKNOWN INDICATION
     Dosage: 50 MG, QWK
     Route: 058
  2. PREDNISONE [Concomitant]
     Dosage: 10 MG, UNK
  3. METHOTREXATE [Concomitant]
     Dosage: 2.5 MG, UNK
  4. GABAPENTIN [Concomitant]
     Dosage: 400 MG, UNK
  5. INDOMETHACIN                       /00003801/ [Concomitant]
     Dosage: 50 MG, UNK
  6. STOOL SOFTENER [Concomitant]
     Dosage: 100-30, UNK
  7. FOLIC ACID [Concomitant]
     Dosage: 5 MG, UNK

REACTIONS (1)
  - Injection site pain [Unknown]
